FAERS Safety Report 6582281-1 (Version None)
Quarter: 2010Q1

REPORT INFORMATION
  Report Type: 
  Country: None (occurrence: None)
  Receive Date: 20100203
  Receipt Date: 20100118
  Transmission Date: 20100710
  Serious: Yes (Death)
  Sender: FDA-Public Use
  Company Number: NSR_00036_2010

PATIENT
  Age: 49 Year
  Sex: Female

DRUGS (6)
  1. HYDROXYZINE [Suspect]
     Indication: DRUG USE FOR UNKNOWN INDICATION
     Dosage: (DF ORAL)
     Route: 048
  2. VENLAFAXINE [Suspect]
     Dosage: (DF ORAL)
     Route: 048
  3. CYCLOBENZAPRINE [Suspect]
     Dosage: (DF ORAL
     Route: 048
  4. TRAMADOL HCL [Suspect]
     Dosage: (DF ORAL
     Route: 048
  5. LAMOTRIGINE [Suspect]
     Dosage: (DF ORAL)
     Route: 048
  6. BENZODIAZEPINE  DERIVATIVES [Suspect]
     Dosage: (DF ORAL)
     Route: 048

REACTIONS (2)
  - COMPLETED SUICIDE [None]
  - POISONING [None]
